FAERS Safety Report 9732815 (Version 1)
Quarter: 2013Q4

REPORT INFORMATION
  Report Type: Spontaneous
  Country: ES (occurrence: ES)
  Receive Date: 20131205
  Receipt Date: 20131205
  Transmission Date: 20140711
  Serious: Yes (Other)
  Sender: FDA-Public Use
  Company Number: ES-SA-2013SA123564

PATIENT
  Age: 66 Year
  Sex: Female

DRUGS (2)
  1. ENOXAPARIN SODIUM [Suspect]
     Indication: PULMONARY EMBOLISM
     Route: 058
  2. ACENOCOUMAROL [Concomitant]
     Indication: PULMONARY EMBOLISM
     Route: 048

REACTIONS (3)
  - Panniculitis [Recovering/Resolving]
  - Erythema [Recovering/Resolving]
  - Injection site nodule [Recovering/Resolving]
